FAERS Safety Report 4878154-2 (Version None)
Quarter: 2005Q4

REPORT INFORMATION
  Report Type: 
  Country: None (occurrence: None)
  Receive Date: 20051212
  Receipt Date: 20051103
  Transmission Date: 20060501
  Serious: Yes (Hospitalization)
  Sender: FDA-Public Use
  Company Number: 2005-02303

PATIENT
  Age: 48 Year
  Sex: Male

DRUGS (10)
  1. VELCADE [Suspect]
     Indication: MULTIPLE MYELOMA
     Route: 065
     Dates: start: 20050501, end: 20050801
  2. ADRIAMYCIN PFS [Concomitant]
  3. DEXAMETHASONE TAB [Concomitant]
  4. PROTONIX [Concomitant]
  5. OXYCONTIN [Concomitant]
  6. OXYCODONE (OXYCODONE) [Concomitant]
  7. PROMETHAZINE [Concomitant]
  8. MAGNESIUM OXIDE (MAGNESIUM OXIDE) [Concomitant]
  9. ZOFRAN [Concomitant]
  10. SENOKOT [Concomitant]

REACTIONS (2)
  - BLOOD PRESSURE FLUCTUATION [None]
  - DIZZINESS [None]
